FAERS Safety Report 4358034-1 (Version None)
Quarter: 2004Q2

REPORT INFORMATION
  Report Type: 
  Country: None (occurrence: None)
  Receive Date: 20040513
  Receipt Date: 20040510
  Transmission Date: 20050107
  Serious: Yes (Death)
  Sender: FDA-Public Use
  Company Number: 04-05-0666

PATIENT
  Age: 55 Year
  Sex: Male

DRUGS (1)
  1. CLOZAPINE [Suspect]
     Indication: SCHIZOPHRENIA
     Dosage: 600-850MG QD ORAL
     Route: 048
     Dates: start: 20000801, end: 20040502

REACTIONS (2)
  - INTESTINAL ISCHAEMIA [None]
  - SEPSIS [None]
